FAERS Safety Report 18285274 (Version 2)
Quarter: 2020Q4

REPORT INFORMATION
  Report Type: Report from Study
  Country: US (occurrence: US)
  Receive Date: 20200918
  Receipt Date: 20201021
  Transmission Date: 20210113
  Serious: Yes (Death, Hospitalization, Other)
  Sender: FDA-Public Use
  Company Number: US-ASTRAZENECA-2020SF19234

PATIENT
  Age: 24943 Day
  Sex: Female

DRUGS (4)
  1. LYNPARZA [Suspect]
     Active Substance: OLAPARIB
     Indication: MESOTHELIOMA
     Route: 048
  2. LYNPARZA [Suspect]
     Active Substance: OLAPARIB
     Indication: MESOTHELIOMA
     Route: 048
     Dates: start: 20200906
  3. LYNPARZA [Suspect]
     Active Substance: OLAPARIB
     Indication: MESOTHELIOMA
     Route: 048
     Dates: start: 20200905
  4. LYNPARZA [Suspect]
     Active Substance: OLAPARIB
     Indication: MESOTHELIOMA
     Route: 048
     Dates: start: 20200905

REACTIONS (4)
  - Sepsis [Fatal]
  - Cerebrovascular accident [Fatal]
  - Thrombosis [Fatal]
  - Atrial fibrillation [Unknown]

NARRATIVE: CASE EVENT DATE: 20200906
